FAERS Safety Report 9685157 (Version 1)
Quarter: 2013Q4

REPORT INFORMATION
  Report Type: Spontaneous
  Country: US (occurrence: None)
  Receive Date: 20131111
  Receipt Date: 20131111
  Transmission Date: 20140711
  Serious: No
  Sender: FDA-Public Use
  Company Number: None

PATIENT
  Age: 40 Year
  Sex: Female
  Weight: 101.15 kg

DRUGS (1)
  1. BELVIQ [Suspect]
     Indication: WEIGHT DECREASED
     Route: 048
     Dates: start: 20131105, end: 20131105

REACTIONS (6)
  - Chills [None]
  - Nausea [None]
  - Migraine [None]
  - Feeling abnormal [None]
  - Muscle spasms [None]
  - Chest discomfort [None]
